FAERS Safety Report 23437355 (Version 1)
Quarter: 2024Q1

REPORT INFORMATION
  Report Type: Spontaneous
  Country: US (occurrence: None)
  Receive Date: 20240123
  Receipt Date: 20240123
  Transmission Date: 20240409
  Serious: No
  Sender: FDA-Public Use
  Company Number: None

PATIENT
  Age: 56 Year
  Sex: Female
  Weight: 92.25 kg

DRUGS (4)
  1. WEGOVY [Suspect]
     Active Substance: SEMAGLUTIDE
     Indication: Weight decreased
     Dosage: OTHER QUANTITY : 1 INJECTION(S);?FREQUENCY : WEEKLY;?
     Route: 058
  2. HYDROCHLOROTHIAZIDE\OLMESARTAN MEDOXOMIL [Concomitant]
     Active Substance: HYDROCHLOROTHIAZIDE\OLMESARTAN MEDOXOMIL
  3. CELEBREX [Concomitant]
     Active Substance: CELECOXIB
  4. Omeperasole [Concomitant]

REACTIONS (5)
  - Tonsillolith [None]
  - Tonsillar disorder [None]
  - Nonspecific reaction [None]
  - Rhinorrhoea [None]
  - Fear [None]

NARRATIVE: CASE EVENT DATE: 20230901
